FAERS Safety Report 13884086 (Version 1)
Quarter: 2017Q3

REPORT INFORMATION
  Report Type: Report from Study
  Country: None (occurrence: US)
  Receive Date: 20170820
  Receipt Date: 20170820
  Transmission Date: 20171127
  Serious: Yes (Other)
  Sender: FDA-Public Use
  Company Number: US-ABBVIE-17K-163-1984219-00

PATIENT
  Age: 63 Year
  Sex: Male

DRUGS (1)
  1. HUMIRA [Suspect]
     Active Substance: ADALIMUMAB
     Indication: PSORIASIS
     Route: 058
     Dates: start: 201510

REACTIONS (4)
  - Precancerous skin lesion [Recovered/Resolved]
  - Malignant melanoma [Unknown]
  - Rash macular [Unknown]
  - Dry skin [Unknown]

NARRATIVE: CASE EVENT DATE: 201704
